FAERS Safety Report 16659231 (Version 1)
Quarter: 2019Q3

REPORT INFORMATION
  Report Type: Spontaneous
  Country: US (occurrence: US)
  Receive Date: 20190802
  Receipt Date: 20190802
  Transmission Date: 20191004
  Serious: Yes (Other)
  Sender: FDA-Public Use
  Company Number: US-CIPLA LTD.-2019US05323

PATIENT

DRUGS (6)
  1. METHOTREXATE. [Concomitant]
     Active Substance: METHOTREXATE
     Indication: METASTASES TO CENTRAL NERVOUS SYSTEM
     Dosage: UNK, HIGH-DOSE
     Route: 065
  2. PREDNISONE. [Suspect]
     Active Substance: PREDNISONE
     Indication: ANAPLASTIC LARGE CELL LYMPHOMA T- AND NULL-CELL TYPES STAGE IV
     Dosage: 100 MILLIGRAM, CYCLICAL, FOR 5 DAYS GIVEN EVERY 3 WEEKS
     Route: 065
  3. DOXORUBICIN [Suspect]
     Active Substance: DOXORUBICIN
     Indication: ANAPLASTIC LARGE CELL LYMPHOMA T- AND NULL-CELL TYPES STAGE IV
     Dosage: 50 MILLIGRAM/SQ. METER, CYCLICAL, DAILY FOR 3 DAYS EVERY 3 WEEKS
     Route: 065
  4. ETOPOSIDE. [Suspect]
     Active Substance: ETOPOSIDE
     Indication: ANAPLASTIC LARGE CELL LYMPHOMA T- AND NULL-CELL TYPES STAGE IV
     Dosage: 100 MILLIGRAM/SQ. METER, DAILY FOR 3 DAYS, GIVEN EVERY 3 WEEKS
     Route: 065
  5. CYCLOPHOSPHAMIDE. [Suspect]
     Active Substance: CYCLOPHOSPHAMIDE
     Indication: ANAPLASTIC LARGE CELL LYMPHOMA T- AND NULL-CELL TYPES STAGE IV
     Dosage: 750 MILLIGRAM/SQ. METER, CYCLICAL, DAILY FOR 3 DAYS EVERY 3 WEEKS
     Route: 065
  6. VINCRISTINE [Suspect]
     Active Substance: VINCRISTINE
     Indication: ANAPLASTIC LARGE CELL LYMPHOMA T- AND NULL-CELL TYPES STAGE IV
     Dosage: 2 MILLIGRAM, CYCLICAL, DAILY FOR 3 DAYS EVERY 3 WEEKS
     Route: 065

REACTIONS (3)
  - Mucosal inflammation [Unknown]
  - Malignant neoplasm progression [Recovered/Resolved]
  - Oesophageal candidiasis [Unknown]
